FAERS Safety Report 18358873 (Version 1)
Quarter: 2020Q4

REPORT INFORMATION
  Report Type: Spontaneous
  Country: CH (occurrence: CH)
  Receive Date: 20201008
  Receipt Date: 20201008
  Transmission Date: 20210114
  Serious: Yes (Other)
  Sender: FDA-Public Use
  Company Number: CH-TEVA-2020-CH-1836230

PATIENT
  Age: 90 Year
  Sex: Female

DRUGS (11)
  1. ROCEPHIN [Suspect]
     Active Substance: CEFTRIAXONE SODIUM
     Dosage: 2000 MILLIGRAM DAILY;
     Route: 042
     Dates: start: 20200904, end: 20200907
  2. ELIQUIS [Concomitant]
     Active Substance: APIXABAN
     Dosage: 5 MILLIGRAM DAILY; PER OS TAGESDOSIS 5MG
     Route: 048
  3. DAFALGAN [Concomitant]
     Active Substance: ACETAMINOPHEN
     Dosage: 2 GRAM DAILY; 2G TAGESDOSIS
     Route: 048
  4. KLACID [Concomitant]
     Active Substance: CLARITHROMYCIN
     Dosage: 500 MG IV ONCE
     Route: 042
     Dates: start: 20200904, end: 20200904
  5. XANAX [Concomitant]
     Active Substance: ALPRAZOLAM
     Dosage: 1 MILLIGRAM DAILY;
     Route: 048
  6. VANCOCIN [Suspect]
     Active Substance: VANCOMYCIN HYDROCHLORIDE
     Dosage: 1000 MILLIGRAM DAILY;
     Route: 042
     Dates: start: 20200904, end: 20200907
  7. ASPIRIN CARDIO [Concomitant]
     Active Substance: ASPIRIN
     Dosage: 100 MILLIGRAM DAILY;
     Route: 048
  8. CALCIMAGONA D3 [Concomitant]
     Active Substance: CALCIUM CARBONATE\CHOLECALCIFEROL
     Dosage: 500/800 /DAY
     Route: 048
  9. CO-AMOXI [Concomitant]
     Active Substance: AMOXICILLIN\CLAVULANATE POTASSIUM
     Dosage: 1.2 G IV ONCE
     Route: 042
     Dates: start: 20200904, end: 20200904
  10. NEBILET [Concomitant]
     Active Substance: NEBIVOLOL
  11. KCL RETARD ZYMA [Concomitant]
     Active Substance: POTASSIUM CHLORIDE
     Dosage: 30 MILLIMOL DAILY; 30MMOL/D
     Route: 048

REACTIONS (1)
  - Blister [Recovering/Resolving]

NARRATIVE: CASE EVENT DATE: 20200906
